FAERS Safety Report 17101863 (Version 2)
Quarter: 2020Q3

REPORT INFORMATION
  Report Type: Report from Study
  Country: JP (occurrence: JP)
  Receive Date: 20191202
  Receipt Date: 20200810
  Transmission Date: 20201102
  Serious: No
  Sender: FDA-Public Use
  Company Number: JP-BEH-2019110077

PATIENT
  Age: 26 Year
  Sex: Male
  Weight: 62 kg

DRUGS (16)
  1. IDELVION [Suspect]
     Active Substance: COAGULATION FACTOR IX RECOMBINANT HUMAN
     Dosage: 3000 INTERNATIONAL UNIT, QW
     Route: 042
     Dates: start: 20180716, end: 20180729
  2. IDELVION [Suspect]
     Active Substance: COAGULATION FACTOR IX RECOMBINANT HUMAN
     Indication: HAEMORRHAGE
     Dosage: 3000 INTERNATIONAL UNIT, QW
     Route: 042
     Dates: start: 20180205, end: 20180521
  3. IDELVION [Suspect]
     Active Substance: COAGULATION FACTOR IX RECOMBINANT HUMAN
     Indication: HAEMORRHAGE
     Dosage: 3000 INTERNATIONAL UNIT, QW
     Route: 042
     Dates: start: 20180205, end: 20180521
  4. RIBAVARIN [Concomitant]
     Active Substance: RIBAVIRIN
     Route: 048
  5. IDELVION [Suspect]
     Active Substance: COAGULATION FACTOR IX RECOMBINANT HUMAN
     Dosage: 3000 INTERNATIONAL UNIT, QW
     Route: 042
     Dates: start: 20180615, end: 20180706
  6. IDELVION [Suspect]
     Active Substance: COAGULATION FACTOR IX RECOMBINANT HUMAN
     Dosage: 3000 INTERNATIONAL UNIT, QW
     Route: 042
     Dates: start: 20180615, end: 20180706
  7. CEFCAPENE PIVOXIL HYDROCHLORIDE [Concomitant]
     Active Substance: CEFCAPENE PIVOXIL HYDROCHLORIDE
     Dosage: UNK
     Route: 048
     Dates: start: 20180205, end: 20180209
  8. IDELVION [Suspect]
     Active Substance: COAGULATION FACTOR IX RECOMBINANT HUMAN
     Dosage: 3000 INTERNATIONAL UNIT, QW
     Route: 042
     Dates: start: 20180716, end: 20180729
  9. IDELVION [Suspect]
     Active Substance: COAGULATION FACTOR IX RECOMBINANT HUMAN
     Dosage: 3000 INTERNATIONAL UNIT, TOT
     Route: 042
     Dates: start: 20180804, end: 20180804
  10. IDELVION [Suspect]
     Active Substance: COAGULATION FACTOR IX RECOMBINANT HUMAN
     Dosage: 3000 INTERNATIONAL UNIT, TOT
     Route: 042
     Dates: start: 20180804, end: 20180804
  11. NOVACT?M [Concomitant]
     Active Substance: FACTOR IX COMPLEX
     Indication: ABDOMINAL PAIN
     Dosage: 4000 INTERNATIONAL UNIT
     Route: 065
  12. IDELVION [Suspect]
     Active Substance: COAGULATION FACTOR IX RECOMBINANT HUMAN
     Indication: FACTOR IX INHIBITION
     Dosage: 3000 INTERNATIONAL UNIT, QW
     Route: 042
     Dates: start: 20171212
  13. IDELVION [Suspect]
     Active Substance: COAGULATION FACTOR IX RECOMBINANT HUMAN
     Indication: FACTOR IX INHIBITION
     Dosage: 3000 INTERNATIONAL UNIT, QW
     Route: 042
     Dates: start: 20171212
  14. IDELVION [Suspect]
     Active Substance: COAGULATION FACTOR IX RECOMBINANT HUMAN
     Indication: PROPHYLAXIS
     Dosage: 3000 INTERNATIONAL UNIT, QW
     Route: 042
     Dates: start: 20171212, end: 20180130
  15. IDELVION [Suspect]
     Active Substance: COAGULATION FACTOR IX RECOMBINANT HUMAN
     Indication: PROPHYLAXIS
     Dosage: 3000 INTERNATIONAL UNIT, QW
     Route: 042
     Dates: start: 20171212, end: 20180130
  16. ACETAMINOPHEN. [Concomitant]
     Active Substance: ACETAMINOPHEN
     Dosage: UNK
     Route: 048
     Dates: start: 20180205, end: 20180209

REACTIONS (1)
  - Abdominal pain [Recovered/Resolved]

NARRATIVE: CASE EVENT DATE: 20180330
